FAERS Safety Report 7841394-4 (Version None)
Quarter: 2011Q4

REPORT INFORMATION
  Report Type: 
  Country: None (occurrence: None)
  Receive Date: 20111025
  Receipt Date: 20111013
  Transmission Date: 20120403
  Serious: Yes (Hospitalization)
  Sender: FDA-Public Use
  Company Number: SE-JNJFOC-20111006229

PATIENT
  Age: 70 Year
  Sex: Male

DRUGS (18)
  1. ACETAMINOPHEN [Concomitant]
     Route: 065
  2. CALCIUM CARBONATE [Concomitant]
     Route: 065
  3. ACTRAPID [Concomitant]
     Dosage: 100E/ML
     Route: 065
  4. SIMVASTATIN [Concomitant]
     Route: 065
  5. MATRIFEN [Concomitant]
     Route: 065
  6. LASIX [Concomitant]
     Route: 065
  7. ASPIRIN [Concomitant]
     Route: 065
  8. PRIMPERAN TAB [Concomitant]
     Route: 065
  9. FELODIPINE [Concomitant]
     Route: 065
  10. MOVIPREP [Concomitant]
     Route: 065
  11. NOVOMIX [Concomitant]
     Route: 065
  12. ALENAT [Concomitant]
     Dosage: WEEK TABLET
     Route: 065
  13. OMEPRAZOL ACTAVIS [Concomitant]
     Dosage: GASTRORESISTANT CAPSULE, HARD
     Route: 065
  14. VITAMIN D [Concomitant]
     Dosage: 400IE
     Route: 065
  15. REMICADE [Suspect]
     Indication: RHEUMATOID ARTHRITIS
     Dosage: AS NECESSARY
     Route: 042
     Dates: start: 20091217, end: 20091230
  16. METHOTREXATE [Concomitant]
     Dosage: 2,5 MG
     Route: 065
  17. PREDNISOLONE [Concomitant]
     Route: 065
  18. METOPROLOL TARTRATE [Concomitant]
     Route: 065

REACTIONS (1)
  - GASTROINTESTINAL HAEMORRHAGE [None]
